FAERS Safety Report 11669939 (Version 2)
Quarter: 2015Q4

REPORT INFORMATION
  Report Type: Report from Study
  Country: US (occurrence: US)
  Receive Date: 20151027
  Receipt Date: 20151111
  Transmission Date: 20160304
  Serious: No
  Sender: FDA-Public Use
  Company Number: US-AMGEN-USASL2015110440

PATIENT
  Age: 55 Year
  Sex: Male

DRUGS (3)
  1. ENBREL [Suspect]
     Active Substance: ETANERCEPT
     Indication: ARTHRITIS REACTIVE
  2. ENBREL [Suspect]
     Active Substance: ETANERCEPT
     Indication: RHEUMATOID ARTHRITIS
     Dosage: UNK
     Route: 065
     Dates: start: 20081223
  3. ENBREL [Suspect]
     Active Substance: ETANERCEPT
     Indication: REITER^S SYNDROME

REACTIONS (4)
  - Intentional product misuse [Unknown]
  - Condition aggravated [Unknown]
  - Inappropriate schedule of drug administration [Unknown]
  - Tendon disorder [Unknown]
